FAERS Safety Report 6489085-9 (Version None)
Quarter: 2009Q4

REPORT INFORMATION
  Report Type: 
  Country: None (occurrence: None)
  Receive Date: 20091210
  Receipt Date: 20091130
  Transmission Date: 20100525
  Serious: Yes (Hospitalization)
  Sender: FDA-Public Use
  Company Number: AT-ABBOTT-09P-009-0611288-00

PATIENT
  Sex: Female
  Weight: 55 kg

DRUGS (6)
  1. HUMIRA [Suspect]
     Indication: CROHN'S DISEASE
     Route: 058
     Dates: start: 20081017
  2. APREDNISLON [Concomitant]
     Indication: CROHN'S DISEASE
     Dates: start: 20071101, end: 20090623
  3. IMUREK [Concomitant]
     Indication: CROHN'S DISEASE
     Dates: start: 20080101, end: 20090122
  4. IMUREK [Concomitant]
     Dates: start: 20090122, end: 20090520
  5. PREDNISOLONE [Concomitant]
     Indication: ERYTHEMA NODOSUM
     Dates: start: 20090623
  6. AUGMENTIN [Concomitant]
     Indication: ABSCESS
     Dates: start: 20090706

REACTIONS (4)
  - CHEST PAIN [None]
  - GENERAL PHYSICAL HEALTH DETERIORATION [None]
  - PNEUMONIA PRIMARY ATYPICAL [None]
  - PYREXIA [None]
